FAERS Safety Report 6509030-7 (Version None)
Quarter: 2009Q4

REPORT INFORMATION
  Report Type: 
  Country: None (occurrence: None)
  Receive Date: 20091221
  Receipt Date: 20090908
  Transmission Date: 20100525
  Serious: Yes (Other)
  Sender: FDA-Public Use
  Company Number: US-ASTRAZENECA-2009SE12079

PATIENT
  Age: 62 Year
  Sex: Male

DRUGS (3)
  1. CRESTOR [Suspect]
     Route: 048
  2. DIOVAN HCT [Concomitant]
     Dosage: 320/25 MG
     Route: 048
  3. ALOPURINOL [Concomitant]
     Dosage: 300
     Route: 048

REACTIONS (1)
  - RASH [None]
